FAERS Safety Report 9605660 (Version 2)
Quarter: 2013Q4

REPORT INFORMATION
  Report Type: Spontaneous
  Country: DE (occurrence: DE)
  Receive Date: 20131008
  Receipt Date: 20131021
  Transmission Date: 20140711
  Serious: Yes (Other)
  Sender: FDA-Public Use
  Company Number: PHHY2013DE111405

PATIENT
  Age: 67 Year
  Sex: Male

DRUGS (4)
  1. DAFIRO [Suspect]
     Indication: HYPERTENSION
     Dosage: 1 DF(160MG VALS/ 5MG AMLO), QD
  2. ASS [Concomitant]
     Indication: ARTERIAL STENOSIS
     Dosage: 1 DF, QD
     Route: 048
     Dates: start: 1996
  3. CLOPIDOGREL [Concomitant]
     Indication: ARTERIAL STENOSIS
     Dosage: 1 DF, QD
  4. ATORVASTATIN [Concomitant]
     Dosage: 20 MG, UNK
     Dates: start: 2013

REACTIONS (1)
  - Haematoma [Not Recovered/Not Resolved]
